FAERS Safety Report 5668238-3 (Version None)
Quarter: 2008Q1

REPORT INFORMATION
  Report Type: 
  Country: None (occurrence: None)
  Receive Date: 20080312
  Receipt Date: 20080226
  Transmission Date: 20080703
  Serious: Yes (Hospitalization)
  Sender: FDA-Public Use
  Company Number: 024597

PATIENT
  Age: 47 Year
  Sex: Female

DRUGS (17)
  1. AZITHROMYCIN [Suspect]
     Indication: PNEUMONIA
     Dosage: 500 MG EVERY 24 HOURS, INTRAVENOUS
     Route: 042
  2. SULFAMETHOXAZOLE AND TRIMETHOPRIM [Concomitant]
  3. TICARCILLIN/ CLAVULANATE POTASSIUM (TICARCILLIN, CLAVULANATE POTASSIUM [Concomitant]
  4. GANCICLOVIR [Concomitant]
  5. TACROLIMUS [Concomitant]
  6. MYCOPHENOLATE (MYCOPHENOLATE MOFETIL) [Concomitant]
  7. PREDNISONE TAB [Concomitant]
  8. LANSOPRAZOLE [Concomitant]
  9. DILTIAZEM [Concomitant]
  10. ITRACONAZOLE [Concomitant]
  11. WARFARIN SODIUM [Concomitant]
  12. ALENDRONATE (ALENDRONIC ACID) [Concomitant]
  13. IPRATROPIUM BROMIDE [Concomitant]
  14. FOLIC ACID [Concomitant]
  15. NISTATIN [Concomitant]
  16. RIMANTADINE (RIMANTADINE) [Concomitant]
  17. VANCOMYCIN [Concomitant]

REACTIONS (4)
  - DEAFNESS TRANSITORY [None]
  - NEUROPATHY PERIPHERAL [None]
  - OTOTOXICITY [None]
  - TINNITUS [None]
